FAERS Safety Report 9913613 (Version 1)
Quarter: 2014Q1

REPORT INFORMATION
  Report Type: Spontaneous
  Country: NL (occurrence: NL)
  Receive Date: 20140220
  Receipt Date: 20140220
  Transmission Date: 20141002
  Serious: Yes (Life-Threatening, Hospitalization, Other)
  Sender: FDA-Public Use
  Company Number: NL-TEVA-461835ISR

PATIENT
  Age: 38 Year
  Sex: Male
  Weight: 75 kg

DRUGS (6)
  1. CISPLATINE INFOPL CONC 1MG/ML [Suspect]
     Indication: TESTIS CANCER
     Dosage: DAY 1 - 5 DAILY 42 MG CISPLATIN
     Route: 042
     Dates: start: 20140110
  2. BLEOMYCINE INJECTIEPOEDER 15USP-E [Suspect]
     Indication: TESTIS CANCER
     Dosage: DAY 2 30 USP
     Route: 042
     Dates: start: 20140111, end: 20140117
  3. ETOPOSIDE INFOPL CONC 20MG/ML [Suspect]
     Indication: TESTIS CANCER
     Dosage: DAY 1 - 5 DAILY 209 MG ETOPOSIDE
     Route: 042
     Dates: start: 20140110
  4. OMEPRAZOL CAPSULE MGA 20MG [Concomitant]
     Dosage: 2DD1
     Route: 048
  5. PRUNACOLON SIROOP [Concomitant]
     Dosage: ONCE DAILY 10ML, IF REQUIRED TWICE DAILY 10ML
     Route: 048
  6. ANDROGEL GEL 50MG IN SACHET [Concomitant]
     Dosage: 1 DD1
     Route: 048

REACTIONS (4)
  - Arterial thrombosis [Recovering/Resolving]
  - Cerebral infarction [Recovering/Resolving]
  - Hemiparesis [Recovering/Resolving]
  - Aphasia [Recovering/Resolving]
